FAERS Safety Report 6245016-8 (Version None)
Quarter: 2009Q2

REPORT INFORMATION
  Report Type: 
  Country: None (occurrence: None)
  Receive Date: 20090623
  Receipt Date: 20090623
  Transmission Date: 20091009
  Serious: Yes (Other)
  Sender: FDA-Public Use
  Company Number: None

PATIENT
  Sex: Male
  Weight: 76.2043 kg

DRUGS (1)
  1. ASTREPRO-AZELASTINE HCL- 13/MCG PER SPRAY MEDA PHARMACEUTICALS [Suspect]
     Indication: SINUS DISORDER
     Dosage: 1 SPRAY EACH DAY AT SAME T NASAL
     Route: 045
     Dates: start: 20090611, end: 20090616

REACTIONS (3)
  - EPISTAXIS [None]
  - NASAL CONGESTION [None]
  - THROMBOSIS [None]
